FAERS Safety Report 5144527-6 (Version None)
Quarter: 2006Q4

REPORT INFORMATION
  Report Type: 
  Country: None (occurrence: None)
  Receive Date: 20061031
  Receipt Date: 20061009
  Transmission Date: 20070319
  Serious: No
  Sender: FDA-Public Use
  Company Number: PHNU2006DE03362

PATIENT
  Sex: Female

DRUGS (2)
  1. LIORESAL [Suspect]
     Indication: MUSCLE SPASTICITY
     Dates: start: 20060908
  2. ACTRAPHANE HM (INSULIN HUMAN INJECTION, ISOPHANE) [Concomitant]

REACTIONS (1)
  - BLOOD GLUCOSE INCREASED [None]
